FAERS Safety Report 11282326 (Version 1)
Quarter: 2015Q3

REPORT INFORMATION
  Report Type: Spontaneous
  Country: GB (occurrence: GB)
  Receive Date: 20150720
  Receipt Date: 20150720
  Transmission Date: 20151125
  Serious: Yes (Other)
  Sender: FDA-Public Use
  Company Number: GB-CIPLA LTD.-2015GB05876

PATIENT

DRUGS (14)
  1. ISPAGHULA EXTRACT\PSYLLIUM [Concomitant]
     Active Substance: PLANTAGO OVATA SEED\PLANTAGO SEED
     Dosage: 1 DF, BID
     Route: 065
     Dates: start: 20150430
  2. MEMANTINE. [Concomitant]
     Active Substance: MEMANTINE
     Dosage: 1 DF, QD
     Route: 065
     Dates: start: 20150603
  3. GLYCERYL TRINITRATE [Concomitant]
     Active Substance: NITROGLYCERIN
     Dosage: AS NECESSARY
     Route: 065
     Dates: start: 20150501, end: 20150529
  4. LANZOL 30 [Concomitant]
     Dosage: 1 DF, QD
     Route: 065
     Dates: start: 20140128
  5. ATROVASTATIN [Concomitant]
     Active Substance: ATORVASTATIN CALCIUM
     Dosage: 1 DF, QD, AT NIGHT
     Route: 065
     Dates: start: 20140220
  6. NICORANDIL [Concomitant]
     Active Substance: NICORANDIL
     Dosage: 1 DF, BID
     Route: 065
     Dates: start: 20140220
  7. COCODAMOL [Concomitant]
     Active Substance: ACETAMINOPHEN\CODEINE PHOSPHATE
     Dosage: 4 SEPERATE DOSES IN A DAY, TAKE 1 OR 2
     Route: 065
     Dates: start: 20140401
  8. CLOPIVAS [Concomitant]
     Active Substance: CLOPIDOGREL BISULFATE
     Dosage: 1 DF, QD
     Route: 065
     Dates: start: 20140220
  9. CALCEOS [Concomitant]
     Active Substance: CALCIUM CARBONATE\CHOLECALCIFEROL
     Dosage: 1 DF, BID
     Route: 065
  10. ATENOLOL. [Concomitant]
     Active Substance: ATENOLOL
     Dosage: 1 DF, QD, EACH MORNING
     Route: 065
     Dates: start: 20140220
  11. LIQUIFILM TEARS [Suspect]
     Active Substance: POLYVINYL ALCOHOL
     Dosage: AS NECESSARY, 1 TO 2 DROPS
     Route: 065
     Dates: start: 20140220
  12. ACIDEX [Concomitant]
     Active Substance: CALCIUM CARBONATE\SODIUM ALGINATE\SODIUM BICARBONATE
     Dosage: 10 ML, FOUR TIMES A DAY
     Route: 065
     Dates: start: 20150408, end: 20150420
  13. DONEPEZIL. [Suspect]
     Active Substance: DONEPEZIL
     Dosage: UNK
     Route: 065
  14. ALENDRONIC ACID [Concomitant]
     Active Substance: ALENDRONIC ACID
     Dosage: 1 DF, 1 WEEKS
     Route: 065
     Dates: start: 20140224

REACTIONS (2)
  - Skin oedema [Recovering/Resolving]
  - Angioedema [Recovering/Resolving]

NARRATIVE: CASE EVENT DATE: 20150620
